FAERS Safety Report 23213416 (Version 2)
Quarter: 2024Q1

REPORT INFORMATION
  Report Type: Report from Study
  Country: DE (occurrence: DE)
  Receive Date: 20231121
  Receipt Date: 20240209
  Transmission Date: 20240409
  Serious: Yes (Other)
  Sender: FDA-Public Use
  Company Number: DE-TEVA-2023-DE-2947523

PATIENT

DRUGS (7)
  1. DEFERASIROX [Suspect]
     Active Substance: DEFERASIROX
     Indication: Chelation therapy
     Dosage: DOSAGE TEXT: FROM THE START OF CONDITIONING UNTIL DAY 3 POST-TRANSPLANTATION
     Route: 048
  2. BUSULFAN [Concomitant]
     Active Substance: BUSULFAN
     Indication: Bone marrow conditioning regimen
     Route: 065
  3. FLUDARABINE [Concomitant]
     Active Substance: FLUDARABINE PHOSPHATE
     Indication: Bone marrow conditioning regimen
     Route: 065
  4. ACYCLOVIR [Concomitant]
     Active Substance: ACYCLOVIR
     Indication: Antiviral prophylaxis
     Dosage: DOSAGE TEXT: FROM THE START OF CONDITIONING
     Route: 065
  5. CIPROFLOXACIN [Concomitant]
     Active Substance: CIPROFLOXACIN
     Indication: Antibiotic prophylaxis
     Dosage: DOSAGE TEXT: FROM THE START OF CONDITIONING
     Route: 065
  6. SULFAMETHOXAZOLE\TRIMETHOPRIM [Concomitant]
     Active Substance: SULFAMETHOXAZOLE\TRIMETHOPRIM
     Indication: Antibiotic prophylaxis
     Dosage: DOSAGE TEXT: FROM THE START OF CONDITIONING
     Route: 065
  7. MICAFUNGIN [Concomitant]
     Active Substance: MICAFUNGIN SODIUM
     Indication: Antifungal prophylaxis
     Dosage: DOSAGE TEXT: FROM DAY OF TRANSPLANTATION
     Route: 065

REACTIONS (1)
  - Venoocclusive liver disease [Unknown]
